FAERS Safety Report 16655005 (Version 1)
Quarter: 2019Q3

REPORT INFORMATION
  Report Type: Spontaneous
  Country: TR (occurrence: TR)
  Receive Date: 20190801
  Receipt Date: 20190801
  Transmission Date: 20191004
  Serious: No
  Sender: FDA-Public Use
  Company Number: TR-ALKEM LABORATORIES LIMITED-TR-ALKEM-2018-06833

PATIENT
  Sex: Male

DRUGS (2)
  1. CEFUROXIME AXETIL. [Suspect]
     Active Substance: CEFUROXIME AXETIL
     Indication: PRODUCT USED FOR UNKNOWN INDICATION
     Dosage: 3 MG IN 0.1 ML (30 MG/ML)
     Route: 047
  2. ZINNAT [Suspect]
     Active Substance: CEFUROXIME
     Indication: PRODUCT USED FOR UNKNOWN INDICATION
     Dosage: 3 MG IN 0.1 ML (30 MG/ML)
     Route: 047

REACTIONS (1)
  - Product preparation issue [Unknown]
